FAERS Safety Report 18121495 (Version 3)
Quarter: 2021Q2

REPORT INFORMATION
  Report Type: Report from Study
  Country: US (occurrence: US)
  Receive Date: 20200807
  Receipt Date: 20210427
  Transmission Date: 20210717
  Serious: Yes (Other)
  Sender: FDA-Public Use
  Company Number: US-BIOGEN-2020BI00906788

PATIENT
  Age: 61 Year
  Sex: Male

DRUGS (2)
  1. TECFIDERA [Suspect]
     Active Substance: DIMETHYL FUMARATE
     Indication: MULTIPLE SCLEROSIS
     Dosage: MAINTENANCE DOSE
     Route: 048
     Dates: start: 20150730
  2. TECFIDERA [Suspect]
     Active Substance: DIMETHYL FUMARATE
     Route: 065
     Dates: start: 20150730

REACTIONS (4)
  - Product dose omission in error [Unknown]
  - Optic nerve disorder [Not Recovered/Not Resolved]
  - Blindness [Unknown]
  - Intentional underdose [Not Recovered/Not Resolved]

NARRATIVE: CASE EVENT DATE: 20210415
